FAERS Safety Report 10160551 (Version 1)
Quarter: 2014Q2

REPORT INFORMATION
  Report Type: Spontaneous
  Country: FR (occurrence: FR)
  Receive Date: 20140508
  Receipt Date: 20140508
  Transmission Date: 20141212
  Serious: Yes (Hospitalization)
  Sender: FDA-Public Use
  Company Number: FR-TEVA-480309ISR

PATIENT
  Age: 67 Year
  Sex: Male

DRUGS (7)
  1. NAPROXENE SODIQUE TEVA 550MG [Suspect]
     Dosage: 2 DOSAGE FORMS DAILY;
     Route: 048
     Dates: end: 20140413
  2. PARACETAMOL MACOPHARMA 10MG/ML [Suspect]
     Dosage: 2 GRAM DAILY;
     Route: 042
     Dates: start: 20140413, end: 20140424
  3. AMOXICILLINE ACIDE CLAVULANIQUE SANDOZ [Suspect]
     Dosage: 3 GRAM DAILY;
     Route: 042
     Dates: start: 20140421
  4. LOXEN [Suspect]
     Route: 042
     Dates: start: 20140423
  5. PREVISCAN 20MG [Suspect]
     Dosage: 1.25 TABLET 1 DAY/8 DAYS AND 1 TABLET DAILY EVERY OTHER DAY (ALTERNATELY)
     Route: 048
     Dates: end: 20140413
  6. HYPNOVEL [Concomitant]
  7. FENTANYL [Concomitant]

REACTIONS (1)
  - Hepatocellular injury [Recovering/Resolving]
